FAERS Safety Report 25071130 (Version 1)
Quarter: 2025Q1

REPORT INFORMATION
  Report Type: Spontaneous
  Country: US (occurrence: US)
  Receive Date: 20250312
  Receipt Date: 20250312
  Transmission Date: 20250408
  Serious: Yes (Life-Threatening, Hospitalization)
  Sender: MYLAN
  Company Number: US-MYLANLABS-2025M1020773

PATIENT
  Age: 76 Year
  Sex: Female

DRUGS (11)
  1. VANCOMYCIN HYDROCHLORIDE [Suspect]
     Active Substance: VANCOMYCIN HYDROCHLORIDE
     Indication: Antibiotic therapy
  2. GABAPENTIN [Concomitant]
     Active Substance: GABAPENTIN
     Indication: Drug therapy
  3. LEVOTHYROXINE [Concomitant]
     Active Substance: LEVOTHYROXINE
     Indication: Drug therapy
  4. PANTOPRAZOLE [Concomitant]
     Active Substance: PANTOPRAZOLE
     Indication: Drug therapy
  5. PAROXETINE [Concomitant]
     Active Substance: PAROXETINE
     Indication: Drug therapy
  6. TRAZODONE [Concomitant]
     Active Substance: TRAZODONE HYDROCHLORIDE
     Indication: Drug therapy
  7. SIMVASTATIN [Concomitant]
     Active Substance: SIMVASTATIN
     Indication: Drug therapy
  8. METFORMIN [Concomitant]
     Active Substance: METFORMIN HYDROCHLORIDE
     Indication: Drug therapy
  9. LIRAGLUTIDE [Concomitant]
     Active Substance: LIRAGLUTIDE
     Indication: Drug therapy
  10. INSULIN GLARGINE [Concomitant]
     Active Substance: INSULIN GLARGINE
     Indication: Drug therapy
  11. ACETAMINOPHEN\HYDROCODONE [Concomitant]
     Active Substance: ACETAMINOPHEN\HYDROCODONE
     Indication: Drug therapy

REACTIONS (4)
  - Anaphylactic reaction [Recovering/Resolving]
  - Shock [Recovering/Resolving]
  - Mastocytosis [Recovering/Resolving]
  - Occupational exposure to product [Recovering/Resolving]
